FAERS Safety Report 7995873-X (Version None)
Quarter: 2011Q4

REPORT INFORMATION
  Report Type: 
  Country: None (occurrence: None)
  Receive Date: 20111220
  Receipt Date: 20111206
  Transmission Date: 20120403
  Serious: Yes (Hospitalization, Other)
  Sender: FDA-Public Use
  Company Number: NL-MEDIMMUNE-MEDI-0014163

PATIENT
  Sex: Male
  Weight: 5.12 kg

DRUGS (1)
  1. SYNAGIS [Suspect]
     Indication: PREMATURE BABY
     Route: 030
     Dates: start: 20110923, end: 20111114

REACTIONS (2)
  - UNEVALUABLE EVENT [None]
  - ULTRASOUND SCAN ABNORMAL [None]
